FAERS Safety Report 6266039-9 (Version None)
Quarter: 2009Q3

REPORT INFORMATION
  Report Type: 
  Country: None (occurrence: None)
  Receive Date: 20090713
  Receipt Date: 20090706
  Transmission Date: 20100115
  Serious: Yes (Hospitalization, Other)
  Sender: FDA-Public Use
  Company Number: US-MERCK-0906USA05218

PATIENT
  Age: 71 Year
  Sex: Male

DRUGS (2)
  1. SINGULAIR [Suspect]
     Route: 048
     Dates: start: 20090601, end: 20090601
  2. ZYRTEC [Suspect]
     Route: 065

REACTIONS (3)
  - BLOOD PRESSURE DECREASED [None]
  - HYPOVENTILATION [None]
  - MYOCARDIAL INFARCTION [None]
